FAERS Safety Report 6821510-3 (Version None)
Quarter: 2010Q3

REPORT INFORMATION
  Report Type: 
  Country: None (occurrence: None)
  Receive Date: 20100707
  Receipt Date: 20081119
  Transmission Date: 20110219
  Serious: No
  Sender: FDA-Public Use
  Company Number: US-PFIZER INC-2008098239

PATIENT
  Sex: Female
  Weight: 55.34 kg

DRUGS (3)
  1. ZOLOFT [Suspect]
     Route: 048
  2. TOPAMAX [Interacting]
     Indication: MIGRAINE PROPHYLAXIS
     Route: 048
  3. NEXIUM [Concomitant]
     Route: 048

REACTIONS (2)
  - DRUG INTERACTION [None]
  - THINKING ABNORMAL [None]
